FAERS Safety Report 12628408 (Version 1)
Quarter: 2016Q3

REPORT INFORMATION
  Report Type: Spontaneous
  Country: US (occurrence: US)
  Receive Date: 20160808
  Receipt Date: 20160808
  Transmission Date: 20161109
  Serious: No
  Sender: FDA-Public Use
  Company Number: US-JAZZ-2016-US-003920

PATIENT
  Sex: Female

DRUGS (57)
  1. BACLOFEN. [Concomitant]
     Active Substance: BACLOFEN
  2. CIPRO [Concomitant]
     Active Substance: CIPROFLOXACIN HYDROCHLORIDE
  3. DICYCLOMINE [Concomitant]
     Active Substance: DICYCLOMINE HYDROCHLORIDE
  4. EXCEDRIN [Concomitant]
     Active Substance: ACETAMINOPHEN\ASPIRIN\CAFFEINE
  5. FLAGYL [Concomitant]
     Active Substance: METRONIDAZOLE\METRONIDAZOLE HYDROCHLORIDE
  6. OLOPATADINE [Concomitant]
     Active Substance: OLOPATADINE
  7. PROVIGIL [Concomitant]
     Active Substance: MODAFINIL
  8. VERAMYST [Concomitant]
     Active Substance: FLUTICASONE FUROATE
  9. DOXYCYCLINE HYCLATE. [Concomitant]
     Active Substance: DOXYCYCLINE HYCLATE
  10. SINGULAIR [Concomitant]
     Active Substance: MONTELUKAST SODIUM
  11. CELEBREX [Concomitant]
     Active Substance: CELECOXIB
  12. CYTRA-2 [Concomitant]
     Active Substance: CITRIC ACID MONOHYDRATE\TRISODIUM CITRATE DIHYDRATE
  13. VOLTAREN [Concomitant]
     Active Substance: DICLOFENAC SODIUM
  14. ZYVOX [Concomitant]
     Active Substance: LINEZOLID
  15. XYREM [Suspect]
     Active Substance: SODIUM OXYBATE
     Indication: NARCOLEPSY
     Dosage: 1.5 G, BID
     Route: 048
     Dates: start: 200912, end: 201002
  16. XYREM [Suspect]
     Active Substance: SODIUM OXYBATE
     Dosage: 4.25 G, BID
     Route: 048
     Dates: start: 201507
  17. HYDROXYCHLOROQUINE [Concomitant]
     Active Substance: HYDROXYCHLOROQUINE
  18. NUVIGIL [Concomitant]
     Active Substance: ARMODAFINIL
  19. TOPIRAMATE. [Concomitant]
     Active Substance: TOPIRAMATE
  20. NUVARING [Concomitant]
     Active Substance: ETHINYL ESTRADIOL\ETONOGESTREL
  21. UROCIT-K [Concomitant]
     Active Substance: POTASSIUM CITRATE
  22. ALLEGRA-D [Concomitant]
     Active Substance: FEXOFENADINE\PSEUDOEPHEDRINE
  23. KLONOPIN [Concomitant]
     Active Substance: CLONAZEPAM
  24. CALCIUM CITRATE [Concomitant]
     Active Substance: CALCIUM CITRATE
  25. SONATA [Concomitant]
     Active Substance: ZALEPLON
  26. MIRENA [Concomitant]
     Active Substance: LEVONORGESTREL
  27. XYREM [Suspect]
     Active Substance: SODIUM OXYBATE
     Indication: CATAPLEXY
     Dosage: DOSE ADJUSTMENTS
     Route: 048
  28. VITAMIN D3 [Concomitant]
     Active Substance: CHOLECALCIFEROL
  29. ZYRTEC [Concomitant]
     Active Substance: CETIRIZINE HYDROCHLORIDE
  30. MILK OF MAGNESIA [Concomitant]
     Active Substance: MAGNESIUM HYDROXIDE
  31. MOMETASONE FUROATE. [Concomitant]
     Active Substance: MOMETASONE FUROATE
  32. MORPHINE SULF [Concomitant]
     Active Substance: MORPHINE SULFATE
  33. GABAPENTIN. [Concomitant]
     Active Substance: GABAPENTIN
  34. LINEZOLID. [Concomitant]
     Active Substance: LINEZOLID
  35. SPIRONOLACTONE. [Concomitant]
     Active Substance: SPIRONOLACTONE
  36. ZOFRAN [Concomitant]
     Active Substance: ONDANSETRON HYDROCHLORIDE
  37. POTASSIUM CITRATE. [Concomitant]
     Active Substance: POTASSIUM CITRATE
  38. PREDNISONE. [Concomitant]
     Active Substance: PREDNISONE
  39. PROTONIX [Concomitant]
     Active Substance: PANTOPRAZOLE SODIUM
  40. TOPAMAX [Concomitant]
     Active Substance: TOPIRAMATE
  41. CHLORHEXIDINE [Concomitant]
     Active Substance: CHLORHEXIDINE
  42. TURMERIC [Concomitant]
     Active Substance: TURMERIC
  43. AMITIZA [Concomitant]
     Active Substance: LUBIPROSTONE
  44. CLOBETASOL [Concomitant]
     Active Substance: CLOBETASOL
  45. HYDROMORPHONE HCL [Concomitant]
     Active Substance: HYDROMORPHONE HYDROCHLORIDE
  46. PROAIR HFA [Concomitant]
     Active Substance: ALBUTEROL SULFATE
  47. RIFAXIMIN [Concomitant]
     Active Substance: RIFAXIMIN
  48. ZANAFLEX [Concomitant]
     Active Substance: TIZANIDINE HYDROCHLORIDE
  49. HYDROCODONE [Concomitant]
     Active Substance: HYDROCODONE
  50. AUGMENTIN [Concomitant]
     Active Substance: AMOXICILLIN\CLAVULANATE POTASSIUM
  51. SODIUM CHLORIDE. [Concomitant]
     Active Substance: SODIUM CHLORIDE
  52. FLONASE [Concomitant]
     Active Substance: FLUTICASONE PROPIONATE
  53. NORCO [Concomitant]
     Active Substance: ACETAMINOPHEN\HYDROCODONE BITARTRATE
  54. K-PHOS [Concomitant]
     Active Substance: POTASSIUM PHOSPHATE, MONOBASIC
  55. QUININE [Concomitant]
     Active Substance: QUININE
  56. ALLEGRA ALLERGY [Concomitant]
     Active Substance: FEXOFENADINE HYDROCHLORIDE
  57. QUINACRINE HYDROCHLORIDE [Concomitant]
     Active Substance: QUINACRINE HYDROCHLORIDE

REACTIONS (1)
  - Insomnia [Unknown]
